FAERS Safety Report 7744304-3 (Version None)
Quarter: 2011Q3

REPORT INFORMATION
  Report Type: 
  Country: None (occurrence: None)
  Receive Date: 20110912
  Receipt Date: 20110826
  Transmission Date: 20111222
  Serious: No
  Sender: FDA-Public Use
  Company Number: US-B.I. PHARMACEUTICALS,INC./RIDGEFIELD-2011-BP-20865BP

PATIENT
  Sex: Male

DRUGS (2)
  1. PRADAXA [Suspect]
     Indication: ATRIAL FIBRILLATION
     Dosage: 150 MG
     Route: 048
     Dates: start: 20110201
  2. PRADAXA [Suspect]
     Dosage: 225 MG
     Route: 048
     Dates: start: 20110801, end: 20110801

REACTIONS (5)
  - PRURITUS [None]
  - INCORRECT DOSE ADMINISTERED [None]
  - RASH [None]
  - FATIGUE [None]
  - URTICARIA [None]
